FAERS Safety Report 5158970-2 (Version None)
Quarter: 2006Q4

REPORT INFORMATION
  Report Type: 
  Country: None (occurrence: None)
  Receive Date: 20061128
  Receipt Date: 20060803
  Transmission Date: 20070319
  Serious: Yes (Life-Threatening, Other)
  Sender: FDA-Public Use
  Company Number: US-BRISTOL-MYERS SQUIBB COMPANY-13466461

PATIENT
  Age: 69 Year
  Sex: Male
  Weight: 94 kg

DRUGS (2)
  1. SPRYCEL [Suspect]
     Indication: CHRONIC MYELOID LEUKAEMIA
     Dosage: RESTARTED 07AUG06 AT 70 MG EVERY OTHER DAY
     Route: 048
     Dates: start: 20060717, end: 20060724
  2. PROCRIT [Concomitant]

REACTIONS (12)
  - ABDOMINAL DISCOMFORT [None]
  - BLOOD LACTATE DEHYDROGENASE INCREASED [None]
  - COUGH [None]
  - DYSPNOEA EXERTIONAL [None]
  - FATIGUE [None]
  - HAEMOGLOBIN DECREASED [None]
  - LOW DENSITY LIPOPROTEIN INCREASED [None]
  - MUSCULOSKELETAL PAIN [None]
  - NEUTROPENIA [None]
  - NIGHT SWEATS [None]
  - PLEURAL EFFUSION [None]
  - PYREXIA [None]
